FAERS Safety Report 9607314 (Version 1)
Quarter: 2013Q4

REPORT INFORMATION
  Report Type: Spontaneous
  Country: US (occurrence: None)
  Receive Date: 20131007
  Receipt Date: 20131007
  Transmission Date: 20140711
  Serious: Yes (Death)
  Sender: FDA-Public Use
  Company Number: None

PATIENT
  Age: 27 Year
  Sex: Male
  Weight: 77.11 kg

DRUGS (1)
  1. EPINEPHRINE [Suspect]
     Indication: SURGERY

REACTIONS (8)
  - Cerebrovascular accident [None]
  - Cardio-respiratory arrest [None]
  - Overdose [None]
  - Traumatic lung injury [None]
  - Contusion [None]
  - Pain [None]
  - Brain death [None]
  - Product label issue [None]
